FAERS Safety Report 9128327 (Version 1)
Quarter: 2013Q1

REPORT INFORMATION
  Report Type: Spontaneous
  Country: US (occurrence: US)
  Receive Date: 20130228
  Receipt Date: 20130228
  Transmission Date: 20140127
  Serious: No
  Sender: FDA-Public Use
  Company Number: US-GLAXOSMITHKLINE-A0041183A

PATIENT
  Age: 39 Year
  Sex: Male
  Weight: 63.6 kg

DRUGS (9)
  1. IMITREX [Suspect]
     Indication: VASCULAR HEADACHE
     Dosage: 6MG SINGLE DOSE
     Route: 058
     Dates: start: 19960225
  2. MAXALT [Suspect]
     Indication: MIGRAINE
  3. LITHIUM [Concomitant]
     Dosage: 300MG THREE TIMES PER DAY
  4. KLONOPIN [Concomitant]
     Dosage: 1MG FOUR TIMES PER DAY
  5. PROZAC [Concomitant]
     Dosage: 40MG PER DAY
  6. TEGRETOL [Concomitant]
     Indication: BIPOLAR I DISORDER
     Dosage: 200MG FOUR TIMES PER DAY
  7. ZOLOFT [Concomitant]
     Indication: BIPOLAR I DISORDER
     Dosage: 100MG PER DAY
  8. DURAGESIC [Concomitant]
     Indication: OSTEONECROSIS
  9. SINGULAIR [Concomitant]
     Indication: ASTHMA
     Dosage: 10MG PER DAY

REACTIONS (8)
  - Chest discomfort [Recovered/Resolved]
  - Vasoconstriction [Unknown]
  - Asthenia [Unknown]
  - Lethargy [Unknown]
  - Chest pain [Unknown]
  - Musculoskeletal discomfort [Unknown]
  - Sensation of heaviness [Unknown]
  - Blood pressure increased [Unknown]
